FAERS Safety Report 18863473 (Version 1)
Quarter: 2021Q1

REPORT INFORMATION
  Report Type: Spontaneous
  Country: US (occurrence: US)
  Receive Date: 20210208
  Receipt Date: 20210208
  Transmission Date: 20210420
  Serious: Yes (Other)
  Sender: FDA-Public Use
  Company Number: US-GLAXOSMITHKLINE-US2021GSK032436

PATIENT
  Sex: Female

DRUGS (7)
  1. ZANTAC [Suspect]
     Active Substance: RANITIDINE HYDROCHLORIDE
     Dosage: 1 UNK
     Route: 065
     Dates: start: 1984, end: 2014
  2. ZANTAC [Suspect]
     Active Substance: RANITIDINE HYDROCHLORIDE
     Dosage: 1 UNK
     Route: 065
     Dates: start: 1984, end: 2014
  3. ZANTAC [Suspect]
     Active Substance: RANITIDINE HYDROCHLORIDE
     Dosage: 75 BOTH
     Route: 065
     Dates: start: 1984, end: 2014
  4. ZANTAC [Suspect]
     Active Substance: RANITIDINE HYDROCHLORIDE
     Dosage: 75 BOTH
     Route: 065
     Dates: start: 1984, end: 2014
  5. RANITIDINE CAPSULE [Suspect]
     Active Substance: RANITIDINE
     Dosage: 75 BOTH
     Route: 065
     Dates: start: 1984, end: 2014
  6. RANITIDINE CAPSULE [Suspect]
     Active Substance: RANITIDINE
     Dosage: 1 UNK
     Route: 065
     Dates: start: 1984, end: 2014
  7. ZANTAC [Suspect]
     Active Substance: RANITIDINE HYDROCHLORIDE
     Dosage: 1 UNK
     Route: 065
     Dates: start: 1984, end: 2014

REACTIONS (1)
  - Colorectal cancer [Unknown]
